FAERS Safety Report 8800368 (Version 1)
Quarter: 2012Q4

REPORT INFORMATION
  Report Type: 
  Country: US (occurrence: US)
  Receive Date: 20120921
  Receipt Date: 20120921
  Transmission Date: 20130627
  Serious: Yes (Other)
  Sender: FDA-Public Use
  Company Number: CHPA2012US019943

PATIENT
  Age: 69 Year
  Sex: Female

DRUGS (7)
  1. MYOFLEX ANALGESIC CREME [Suspect]
     Indication: ARTHRITIS
     Dosage: 1/2 inch, Mostly at night
     Route: 061
     Dates: start: 2009
  2. ANTIHYPERTENSIVES [Suspect]
     Indication: HYPERTENSION
     Dosage: Unk, Unk
     Dates: end: 201103
  3. NORVASC                                 /DEN/ [Concomitant]
     Indication: HYPERTENSION
     Dosage: UNK, at night
  4. HYDROCHLOROTHIAZIDE [Concomitant]
     Indication: HYPERTENSION
     Dosage: UNK, in the morning
     Dates: start: 201103
  5. FELDENE [Concomitant]
     Indication: ARTHRITIS
     Dates: start: 1992
  6. METFORMIN [Concomitant]
     Indication: DIABETES MELLITUS
  7. GLYBURIDE [Concomitant]
     Indication: DIABETES MELLITUS

REACTIONS (4)
  - Arthropathy [Recovered/Resolved]
  - Chest pain [Recovered/Resolved]
  - Cough [Recovered/Resolved]
  - Feeling abnormal [Recovered/Resolved]
